FAERS Safety Report 7715737-6 (Version None)
Quarter: 2011Q3

REPORT INFORMATION
  Report Type: 
  Country: None (occurrence: None)
  Receive Date: 20110829
  Receipt Date: 20110822
  Transmission Date: 20111222
  Serious: Yes (Hospitalization)
  Sender: FDA-Public Use
  Company Number: DE-PFIZER INC-2011184240

PATIENT
  Age: 74 Year
  Sex: Male
  Weight: 75 kg

DRUGS (3)
  1. ANIDULAFUNGIN [Suspect]
     Dosage: 100 MG, 1X/DAY
     Route: 042
     Dates: start: 20110716, end: 20110728
  2. ANIDULAFUNGIN [Suspect]
     Indication: SYSTEMIC CANDIDA
     Dosage: 200 MG, 1X/DAY
     Route: 042
     Dates: start: 20110715, end: 20110715
  3. CEFTAZIDIME [Concomitant]
     Indication: PNEUMONIA BACTERIAL
     Dosage: 6 G, 1X/DAY
     Route: 042
     Dates: start: 20110730, end: 20110811

REACTIONS (5)
  - PULMONARY MYCOSIS [None]
  - PNEUMONIA BACTERIAL [None]
  - ENTEROCOCCUS TEST POSITIVE [None]
  - DRUG INEFFECTIVE [None]
  - ESCHERICHIA TEST POSITIVE [None]
